FAERS Safety Report 6213323-0 (Version None)
Quarter: 2009Q2

REPORT INFORMATION
  Report Type: 
  Country: None (occurrence: None)
  Receive Date: 20090603
  Receipt Date: 20090529
  Transmission Date: 20091009
  Serious: Yes (Death)
  Sender: FDA-Public Use
  Company Number: PE-BRISTOL-MYERS SQUIBB COMPANY-14643886

PATIENT
  Sex: Female

DRUGS (1)
  1. IXEMPRA KIT [Suspect]

REACTIONS (1)
  - PULMONARY EMBOLISM [None]
